FAERS Safety Report 8911751 (Version 1)
Quarter: 2012Q4

REPORT INFORMATION
  Report Type: 
  Country: CA (occurrence: CA)
  Receive Date: 20121116
  Receipt Date: 20121116
  Transmission Date: 20130627
  Serious: Yes (Other)
  Sender: FDA-Public Use
  Company Number: CA-PFIZER INC-2012279899

PATIENT
  Age: 72 Year
  Sex: Female

DRUGS (6)
  1. DETROL LA [Suspect]
     Dosage: 4 mg, daily
     Dates: start: 2011
  2. ATORVASTATIN [Concomitant]
     Dosage: UNK
  3. LOSEC [Concomitant]
     Dosage: UNK
  4. TYLENOL [Concomitant]
     Indication: BACK PAIN
     Dosage: UNK
  5. ATIVAN [Concomitant]
     Indication: SLEEP DIFFICULT
     Dosage: UNK, sometimes
  6. LOW DOSE ASPIRIN [Concomitant]
     Dosage: UNK

REACTIONS (4)
  - Heart rate irregular [Unknown]
  - Dizziness [Not Recovered/Not Resolved]
  - Headache [Not Recovered/Not Resolved]
  - Nausea [Not Recovered/Not Resolved]
